FAERS Safety Report 8415415-4 (Version None)
Quarter: 2012Q2

REPORT INFORMATION
  Report Type: 
  Country: None (occurrence: None)
  Receive Date: 20120606
  Receipt Date: 20120525
  Transmission Date: 20120825
  Serious: Yes (Hospitalization)
  Sender: FDA-Public Use
  Company Number: AU-JNJFOC-20120401661

PATIENT
  Sex: Male
  Weight: 101.2 kg

DRUGS (20)
  1. NEXIUM [Concomitant]
     Indication: GASTROOESOPHAGEAL REFLUX DISEASE
     Route: 065
     Dates: start: 20120301
  2. WARFARIN SODIUM [Concomitant]
     Indication: PULMONARY EMBOLISM
     Route: 065
     Dates: start: 20101222
  3. ELIGARD [Concomitant]
     Indication: HORMONE THERAPY
     Route: 065
     Dates: start: 20050801
  4. INTRAVENOUS FLUIDS [Concomitant]
     Indication: DEHYDRATION
     Route: 042
     Dates: start: 20120330, end: 20120404
  5. ZOFRAN [Concomitant]
     Route: 065
     Dates: start: 20120330, end: 20120404
  6. PREDNISOLONE [Suspect]
     Indication: PROSTATE CANCER METASTATIC
     Route: 048
     Dates: start: 20120229, end: 20120412
  7. LACTULOSE [Concomitant]
     Indication: CONSTIPATION PROPHYLAXIS
     Route: 065
     Dates: start: 20120329, end: 20120403
  8. ZOMETA [Concomitant]
     Indication: METASTASES TO BONE
     Route: 065
     Dates: start: 20090101
  9. ABIRATERONE ACETATE [Suspect]
     Route: 048
  10. INTRAVENOUS FLUIDS [Concomitant]
     Route: 042
     Dates: start: 20120418, end: 20120421
  11. ZOFRAN [Concomitant]
     Indication: DEHYDRATION
     Route: 065
     Dates: start: 20120418, end: 20120421
  12. OXYCODONE HCL [Concomitant]
     Indication: BONE PAIN
     Route: 065
     Dates: start: 20100101
  13. MAXOLON [Concomitant]
     Indication: NAUSEA
     Route: 065
     Dates: start: 20111101
  14. XYLOCAINE VISKEUS [Concomitant]
     Indication: GASTROOESOPHAGEAL REFLUX DISEASE
     Route: 065
     Dates: start: 20120404
  15. ABIRATERONE ACETATE [Suspect]
     Indication: PROSTATE CANCER METASTATIC
     Route: 048
     Dates: start: 20120229, end: 20120330
  16. NILSTAT [Concomitant]
     Indication: PROPHYLAXIS
     Route: 065
     Dates: start: 20120329
  17. ATROVENT [Concomitant]
     Indication: DYSPNOEA EXERTIONAL
     Route: 065
     Dates: start: 20000101
  18. PANADOL OSTEO [Concomitant]
     Indication: BONE PAIN
     Route: 065
     Dates: start: 20001201
  19. OPIUM/NALOXONE TAB [Concomitant]
     Indication: BONE PAIN
     Route: 065
     Dates: start: 20100101
  20. SLOW-K [Concomitant]
     Indication: HYPOKALAEMIA
     Route: 065
     Dates: start: 20120403

REACTIONS (1)
  - DEHYDRATION [None]
